FAERS Safety Report 5467127-7 (Version None)
Quarter: 2007Q3

REPORT INFORMATION
  Report Type: 
  Country: None (occurrence: None)
  Receive Date: 20070921
  Receipt Date: 20070921
  Transmission Date: 20080115
  Serious: Yes (Life-Threatening, Hospitalization, Other)
  Sender: FDA-Public Use
  Company Number: None

PATIENT
  Age: 22 Year
  Sex: Male
  Weight: 62.5964 kg

DRUGS (5)
  1. CHANTIX [Suspect]
     Indication: SMOKING CESSATION THERAPY
     Dosage: 5-10MG TWICE DAILY PO
     Route: 048
     Dates: start: 20070130, end: 20070815
  2. DEPAKOTE [Concomitant]
  3. DYLANTEM [Concomitant]
  4. CHANTIX [Concomitant]
  5. ADDEROLL [Concomitant]

REACTIONS (7)
  - ALCOHOL USE [None]
  - BRAIN CONTUSION [None]
  - LOSS OF CONSCIOUSNESS [None]
  - LOSS OF EMPLOYMENT [None]
  - MIGRAINE [None]
  - ROAD TRAFFIC ACCIDENT [None]
  - SCAR [None]
